FAERS Safety Report 6221700-7 (Version None)
Quarter: 2009Q2

REPORT INFORMATION
  Report Type: 
  Country: None (occurrence: None)
  Receive Date: 20090608
  Receipt Date: 20090522
  Transmission Date: 20091009
  Serious: Yes (Hospitalization)
  Sender: FDA-Public Use
  Company Number: 8046754

PATIENT
  Sex: Female
  Weight: 74.1 kg

DRUGS (9)
  1. CIMZIA [Suspect]
     Indication: CROHN'S DISEASE
     Dosage: 400 MG SC
     Route: 058
     Dates: start: 20090409
  2. POTASSIUM CHLORIDE [Concomitant]
  3. TICLID [Concomitant]
  4. ACIPHEX [Concomitant]
  5. CARDIZEM [Concomitant]
  6. DIAZIDE [Concomitant]
  7. IMDUR [Concomitant]
  8. TOPROL-XL [Concomitant]
  9. RONEXOL [Concomitant]

REACTIONS (4)
  - ASTHENIA [None]
  - DIARRHOEA [None]
  - NAUSEA [None]
  - PALPITATIONS [None]
